FAERS Safety Report 7438256-3 (Version None)
Quarter: 2011Q2

REPORT INFORMATION
  Report Type: 
  Country: None (occurrence: None)
  Receive Date: 20110426
  Receipt Date: 20101014
  Transmission Date: 20111010
  Serious: Yes (Hospitalization)
  Sender: FDA-Public Use
  Company Number: US-BAYER-201018632NA

PATIENT
  Age: 48 Year
  Sex: Female
  Weight: 87.075 kg

DRUGS (11)
  1. ATENOLOL [Concomitant]
     Indication: HYPERTENSION
     Dosage: UNK
     Dates: start: 20030101
  2. CENTRUM SILVER [Concomitant]
  3. SIMVASTATIN [Concomitant]
     Indication: BLOOD CHOLESTEROL INCREASED
     Dosage: UNK
     Dates: start: 20030101
  4. YASMIN [Suspect]
     Indication: MENSTRUATION IRREGULAR
     Dosage: UNK UNK, UNK
     Route: 048
  5. OSCAL [Concomitant]
  6. ZOCOR [Concomitant]
  7. LUPRON DEPOT-3 [Concomitant]
     Dosage: 11.25 MG, UNK
  8. HYDROCHLOROTHIAZIDE [Concomitant]
     Indication: HYPERTENSION
     Dosage: UNK
     Dates: start: 20030101
  9. DIETARY SUPPLEMENTS NOS [Concomitant]
  10. WARFARIN [Concomitant]
  11. FERROUS SULFATE TAB [Concomitant]

REACTIONS (3)
  - PAIN [None]
  - CEREBROVASCULAR ACCIDENT [None]
  - MYOCARDIAL INFARCTION [None]
